FAERS Safety Report 17547833 (Version 1)
Quarter: 2020Q1

REPORT INFORMATION
  Report Type: Spontaneous
  Country: PR (occurrence: PR)
  Receive Date: 20200316
  Receipt Date: 20200316
  Transmission Date: 20200409
  Serious: No
  Sender: FDA-Public Use
  Company Number: PR-BAXTER-2020BAX005344

PATIENT
  Age: 12 Year
  Sex: Male

DRUGS (12)
  1. K PHOSPHATE [Suspect]
     Active Substance: POTASSIUM PHOSPHATE
     Indication: PARENTERAL NUTRITION
     Dosage: 3MM/ML 15 VIAL
     Route: 042
     Dates: start: 20200304
  2. K PHOSPHATE [Suspect]
     Active Substance: POTASSIUM PHOSPHATE
     Route: 042
     Dates: start: 202003
  3. ZINC CHLORIDE [Suspect]
     Active Substance: ZINC CHLORIDE
     Indication: PARENTERAL NUTRITION
     Dosage: 1MG/ML 10 VIAL
     Route: 042
     Dates: start: 20200304
  4. STERILE WATER [Suspect]
     Active Substance: WATER
     Indication: PARENTERAL NUTRITION
     Dosage: 3000 BAG
     Route: 042
     Dates: start: 20200304
  5. ADULT INFUVITE MULTIPLE VITAMINS FOR INFUSION [Suspect]
     Active Substance: .ALPHA.-TOCOPHEROL ACETATE\ASCORBIC ACID\BIOTIN\CHOLECALCIFEROL\CYANOCOBALAMIN\DEXPANTHENOL\FOLIC ACID\NIACINAMIDE\PHYTONADIONE\PYRIDOXINE HYDROCHLORIDE\RIBOFLAVIN 5^-PHOSPHATE SODIUM\THIAMINE HYDROCHLORIDE\VITAMIN A PALMITATE
     Indication: PARENTERAL NUTRITION
     Dosage: 60 SYRINGE
     Route: 042
     Dates: start: 20200304
  6. TRAVASOL [Suspect]
     Active Substance: ALANINE\ARGININE\GLYCINE\HISTIDINE\ISOLEUCINE\LEUCINE\LYSINE HYDROCHLORIDE\METHIONINE\PHENYLALANINE\PROLINE\SERINE\THREONINE\TRYPTOPHAN\TYROSINE\VALINE
     Indication: PARENTERAL NUTRITION
     Dosage: 2000 BAG
     Route: 042
     Dates: start: 20200304
  7. CA GLUCONATE [Suspect]
     Active Substance: CALCIUM GLUCONATE
     Indication: PARENTERAL NUTRITION
     Dosage: 0.465MEQ/ML 50 VIAL
     Route: 042
     Dates: start: 20200304
  8. KAYEXALATE [Suspect]
     Active Substance: SODIUM POLYSTYRENE SULFONATE
     Indication: PRODUCT USED FOR UNKNOWN INDICATION
     Route: 065
  9. 5% SODIUM CHLORIDE INJECTION [Suspect]
     Active Substance: SODIUM CHLORIDE
     Indication: PARENTERAL NUTRITION
     Dosage: 500 BAG
     Route: 042
     Dates: start: 20200304
  10. NA ACETATE [Suspect]
     Active Substance: SODIUM ACETATE
     Indication: PARENTERAL NUTRITION
     Dosage: 2MEQ/ML 50 VIAL
     Route: 042
     Dates: start: 20200304
  11. MG SULFATE [Suspect]
     Active Substance: MAGNESIUM SULFATE
     Indication: PARENTERAL NUTRITION
     Dosage: 4MEQ/ML 50 VIAL
     Route: 042
     Dates: start: 20200304
  12. 70% DEXTROSE INJECTION USP [Suspect]
     Active Substance: DEXTROSE
     Indication: PARENTERAL NUTRITION
     Dosage: 2000 BAG
     Route: 042
     Dates: start: 20200304

REACTIONS (2)
  - Product preparation error [Recovered/Resolved]
  - Blood potassium decreased [Recovered/Resolved]

NARRATIVE: CASE EVENT DATE: 20200304
